FAERS Safety Report 7666605-X (Version None)
Quarter: 2011Q3

REPORT INFORMATION
  Report Type: 
  Country: None (occurrence: None)
  Receive Date: 20110806
  Receipt Date: 20110713
  Transmission Date: 20111222
  Serious: No
  Sender: FDA-Public Use
  Company Number: US-ABBOTT-11P-163-0838845-00

PATIENT
  Sex: Male
  Weight: 95.34 kg

DRUGS (7)
  1. NIASPAN [Suspect]
     Indication: PRODUCT USED FOR UNKNOWN INDICATION
     Dosage: 500 MG
     Dates: start: 20110525
  2. SIMVASTATIN [Concomitant]
     Indication: BLOOD CHOLESTEROL INCREASED
  3. PLAVIX [Concomitant]
     Indication: CARDIAC DISORDER
  4. CARDVEDILOL [Concomitant]
     Indication: BLOOD PRESSURE
  5. FISH OIL [Concomitant]
     Indication: BLOOD CHOLESTEROL INCREASED
  6. DIOVAN [Concomitant]
     Indication: BLOOD PRESSURE
  7. NIASPAN [Suspect]
     Indication: BLOOD CHOLESTEROL INCREASED

REACTIONS (2)
  - PRURITUS [None]
  - FLUSHING [None]
